FAERS Safety Report 8207515-9 (Version None)
Quarter: 2012Q1

REPORT INFORMATION
  Report Type: 
  Country: None (occurrence: None)
  Receive Date: 20120314
  Receipt Date: 20120229
  Transmission Date: 20120608
  Serious: Yes (Hospitalization)
  Sender: FDA-Public Use
  Company Number: DE-CELGENEUS-062-21660-11090208

PATIENT
  Age: 73 Year
  Sex: Female
  Weight: 59 kg

DRUGS (2)
  1. ABRAXANE [Suspect]
     Indication: BREAST CANCER
     Dosage: 155 MILLIGRAM
     Route: 041
     Dates: start: 20110707, end: 20110728
  2. XELODA [Suspect]
     Indication: BREAST CANCER
     Dosage: 500 MILLIGRAM
     Route: 065
     Dates: start: 20110707, end: 20110728

REACTIONS (1)
  - HUMERUS FRACTURE [None]
